FAERS Safety Report 10169629 (Version 2)
Quarter: 2014Q2

REPORT INFORMATION
  Report Type: Spontaneous
  Country: CN (occurrence: CN)
  Receive Date: 20140513
  Receipt Date: 20140616
  Transmission Date: 20141212
  Serious: Yes (Hospitalization)
  Sender: FDA-Public Use
  Company Number: CN-JNJFOC-20140506436

PATIENT
  Age: 23 Year
  Sex: Male

DRUGS (7)
  1. XARELTO [Suspect]
     Indication: THROMBOSIS PROPHYLAXIS
     Route: 048
     Dates: start: 20130131, end: 20130201
  2. XARELTO [Suspect]
     Indication: THROMBOSIS PROPHYLAXIS
     Route: 048
     Dates: start: 20130122, end: 20130130
  3. SODIUM CHLORIDE [Concomitant]
     Route: 041
  4. GINKGO [Concomitant]
     Route: 041
  5. GLUCOSE [Concomitant]
     Route: 041
  6. CALCIUM GLUCONATE [Concomitant]
     Route: 041
  7. VITAMIN C [Concomitant]
     Route: 041

REACTIONS (1)
  - Haematuria [Recovered/Resolved]
